FAERS Safety Report 6970275-3 (Version None)
Quarter: 2010Q3

REPORT INFORMATION
  Report Type: 
  Country: None (occurrence: None)
  Receive Date: 20100908
  Receipt Date: 20100901
  Transmission Date: 20110219
  Serious: Yes (Hospitalization)
  Sender: FDA-Public Use
  Company Number: US-GENZYME-CERZ-1001381

PATIENT

DRUGS (5)
  1. CEREZYME [Suspect]
     Indication: GAUCHER'S DISEASE
     Dosage: 60 U/KG, Q2W
     Route: 042
     Dates: start: 19990101, end: 20100101
  2. METHADONE [Concomitant]
     Indication: BACK PAIN
     Dosage: 170 MG/DAY, UNK
     Route: 065
  3. METHADONE [Concomitant]
     Indication: BONE PAIN
  4. RITUXAN [Concomitant]
     Indication: CHRONIC LYMPHOCYTIC LEUKAEMIA
     Dosage: UNK
     Dates: start: 20100607
  5. BENDAMUSTINE [Concomitant]
     Indication: CHRONIC LYMPHOCYTIC LEUKAEMIA
     Dosage: UNK
     Route: 042
     Dates: start: 20100607

REACTIONS (9)
  - ABDOMINAL DISTENSION [None]
  - ANAEMIA [None]
  - BACK PAIN [None]
  - CONSTIPATION [None]
  - FALL [None]
  - PNEUMONIA [None]
  - RENAL FAILURE ACUTE [None]
  - STASIS DERMATITIS [None]
  - THROMBOCYTOPENIA [None]
